FAERS Safety Report 20101550 (Version 2)
Quarter: 2021Q4

REPORT INFORMATION
  Report Type: Spontaneous
  Country: US (occurrence: US)
  Receive Date: 20211123
  Receipt Date: 20211202
  Transmission Date: 20220303
  Serious: Yes (Hospitalization)
  Sender: FDA-Public Use
  Company Number: US-009507513-2111USA006876

PATIENT
  Age: 69 Year
  Sex: Female

DRUGS (1)
  1. TEMODAR [Suspect]
     Active Substance: TEMOZOLOMIDE
     Indication: Pineal neoplasm
     Dosage: UNK

REACTIONS (3)
  - Hyponatraemia [Unknown]
  - Fatigue [Unknown]
  - Off label use [Unknown]
